FAERS Safety Report 9287596 (Version 1)
Quarter: 2013Q2

REPORT INFORMATION
  Report Type: Spontaneous
  Country: CA (occurrence: CA)
  Receive Date: 20130514
  Receipt Date: 20130514
  Transmission Date: 20140414
  Serious: Yes (Other)
  Sender: FDA-Public Use
  Company Number: CA-AMGEN-CANSP2013033176

PATIENT
  Age: 82 Year
  Sex: Male
  Weight: 80 kg

DRUGS (1)
  1. PROLIA [Suspect]
     Indication: BONE DENSITY ABNORMAL
     Dosage: UNK
     Dates: start: 20111206, end: 20121205

REACTIONS (1)
  - Dialysis [Unknown]
